FAERS Safety Report 6532212-5 (Version None)
Quarter: 2010Q1

REPORT INFORMATION
  Report Type: 
  Country: None (occurrence: None)
  Receive Date: 20100107
  Receipt Date: 20100107
  Transmission Date: 20100710
  Serious: No
  Sender: FDA-Public Use
  Company Number: None

PATIENT
  Age: 65 Year
  Sex: Female
  Weight: 77.5651 kg

DRUGS (7)
  1. PROCRIT [Suspect]
     Indication: ANAEMIA
     Dosage: 40,000 UNITS WEEKLY SQ
     Route: 058
     Dates: start: 20081220, end: 20090623
  2. PEGYLATED INTERFERON [Concomitant]
  3. RIBAVIRIN [Concomitant]
  4. PREMARIN [Concomitant]
  5. COMBIVENT [Concomitant]
  6. ADVAIR PRN [Concomitant]
  7. SINGULAIR [Concomitant]

REACTIONS (3)
  - ANTI-ERYTHROPOIETIN ANTIBODY POSITIVE [None]
  - APLASIA PURE RED CELL [None]
  - CONDITION AGGRAVATED [None]
